FAERS Safety Report 11735346 (Version 2)
Quarter: 2015Q4

REPORT INFORMATION
  Report Type: Report from Study
  Country: US (occurrence: US)
  Receive Date: 20151113
  Receipt Date: 20151124
  Transmission Date: 20160304
  Serious: Yes (Hospitalization, Disabling)
  Sender: FDA-Public Use
  Company Number: US-ACTELION-A-NJ2015-114864

PATIENT
  Age: 72 Year
  Sex: Female

DRUGS (4)
  1. VELETRI [Suspect]
     Active Substance: EPOPROSTENOL
     Dosage: 66 NG/KG, PER MIN
     Route: 042
  2. ADCIRCA [Concomitant]
     Active Substance: TADALAFIL
  3. COUMADIN [Concomitant]
     Active Substance: WARFARIN SODIUM
  4. VELETRI [Suspect]
     Active Substance: EPOPROSTENOL
     Indication: PULMONARY ARTERIAL HYPERTENSION
     Dosage: 65 NG/KG, PER MIN
     Route: 042
     Dates: start: 20130529

REACTIONS (7)
  - Pulmonary arterial hypertension [Unknown]
  - Walking distance test abnormal [Unknown]
  - Fluid overload [Unknown]
  - Neuralgia [Unknown]
  - Dyspnoea [Recovered/Resolved]
  - Disease progression [Recovered/Resolved]
  - Disability [Unknown]

NARRATIVE: CASE EVENT DATE: 20150304
